FAERS Safety Report 18266258 (Version 1)
Quarter: 2020Q3

REPORT INFORMATION
  Report Type: Spontaneous
  Country: US (occurrence: US)
  Receive Date: 20200915
  Receipt Date: 20200915
  Transmission Date: 20201103
  Serious: Yes (Other)
  Sender: FDA-Public Use
  Company Number: US-STRIDES ARCOLAB LIMITED-2020SP000826

PATIENT
  Age: 14 Year
  Sex: Male

DRUGS (4)
  1. BUDESONIDE. [Suspect]
     Active Substance: BUDESONIDE
     Indication: GRAFT VERSUS HOST DISEASE IN LUNG
     Dosage: UNK
     Route: 065
  2. TACROLIMUS. [Suspect]
     Active Substance: TACROLIMUS
     Indication: GRAFT VERSUS HOST DISEASE
     Dosage: UNK
     Route: 061
  3. SIROLIMUS. [Suspect]
     Active Substance: SIROLIMUS
     Indication: GRAFT VERSUS HOST DISEASE IN SKIN
     Dosage: UNK
     Route: 065
  4. ACYCLOVIR [ACICLOVIR] [Concomitant]
     Active Substance: ACYCLOVIR
     Indication: SKIN LESION
     Dosage: 20 MILLIGRAM/KILOGRAM, EVERY 8 HOURS
     Route: 042

REACTIONS (10)
  - Headache [Unknown]
  - Off label use [Unknown]
  - Hypoaesthesia oral [Unknown]
  - Dysarthria [Unknown]
  - Pyrexia [Unknown]
  - Herpes zoster meningoencephalitis [Unknown]
  - Rash [Unknown]
  - Aphasia [Unknown]
  - Hypoaesthesia [Unknown]
  - Skin lesion [Unknown]
